FAERS Safety Report 7336381-9 (Version None)
Quarter: 2011Q1

REPORT INFORMATION
  Report Type: 
  Country: None (occurrence: None)
  Receive Date: 20110307
  Receipt Date: 20110302
  Transmission Date: 20110831
  Serious: Yes (Hospitalization, Other)
  Sender: FDA-Public Use
  Company Number: US-PFIZER INC-2010157207

PATIENT
  Sex: Male

DRUGS (9)
  1. CHANTIX [Suspect]
     Dosage: 1 MG, DAILY
     Dates: start: 20090410, end: 20090501
  2. ZOLOFT [Concomitant]
     Indication: DEPRESSION
     Dosage: UNK
     Dates: start: 20060101, end: 20090101
  3. CHANTIX [Suspect]
     Indication: SMOKING CESSATION THERAPY
     Dosage: 1 MG, DAILY
     Dates: start: 20080109, end: 20080401
  4. ATRIPLA [Concomitant]
     Indication: HIV INFECTION
     Dosage: UNK
     Dates: start: 20060101
  5. PREVACID [Concomitant]
     Indication: GASTROOESOPHAGEAL REFLUX DISEASE
     Dosage: UNK
     Dates: start: 20060701
  6. SERTRALINE [Concomitant]
     Indication: DEPRESSION
     Dosage: UNK
     Dates: start: 20060901
  7. SUSTIVA [Concomitant]
     Indication: HIV INFECTION
     Dosage: UNK
  8. EPIVIR [Concomitant]
     Indication: HIV INFECTION
     Dosage: UNK
     Dates: start: 20060101
  9. VIREAD [Concomitant]
     Indication: HIV INFECTION
     Dosage: UNK
     Dates: start: 20060101

REACTIONS (8)
  - INTENTIONAL OVERDOSE [None]
  - DEPRESSION [None]
  - MENTAL DISORDER [None]
  - ABNORMAL BEHAVIOUR [None]
  - SUICIDE ATTEMPT [None]
  - AGGRESSION [None]
  - EMOTIONAL DISTRESS [None]
  - ANXIETY [None]
